FAERS Safety Report 14494259 (Version 1)
Quarter: 2018Q1

REPORT INFORMATION
  Report Type: Spontaneous
  Country: PL (occurrence: PL)
  Receive Date: 20180206
  Receipt Date: 20180206
  Transmission Date: 20180509
  Serious: Yes (Hospitalization, Other)
  Sender: FDA-Public Use
  Company Number: PL-BAYER-2017-123927

PATIENT
  Age: 73 Year
  Sex: Male
  Weight: 100 kg

DRUGS (1)
  1. ULTRAVIST [Suspect]
     Active Substance: IOPROMIDE
     Indication: COMPUTERISED TOMOGRAM
     Dosage: 108 ML, ONCE
     Route: 042
     Dates: start: 20170621, end: 20170621

REACTIONS (6)
  - Cyanosis [Recovered/Resolved]
  - Contusion [Unknown]
  - Syncope [Recovered/Resolved]
  - Pulse abnormal [Recovered/Resolved]
  - Respiratory disorder [Recovered/Resolved]
  - Heart rate decreased [Unknown]

NARRATIVE: CASE EVENT DATE: 20170621
